FAERS Safety Report 23523184 (Version 3)
Quarter: 2024Q2

REPORT INFORMATION
  Report Type: Report from Study
  Country: US (occurrence: None)
  Receive Date: 20240214
  Receipt Date: 20240503
  Transmission Date: 20240716
  Serious: Yes (Hospitalization, Other)
  Sender: FDA-Public Use
  Company Number: 2024A034894

PATIENT
  Age: 53 Year
  Sex: Female

DRUGS (7)
  1. TEZEPELUMAB-EKKO [Suspect]
     Active Substance: TEZEPELUMAB-EKKO
     Indication: Asthma
     Route: 058
     Dates: start: 20230607
  2. SYMBICORT [Concomitant]
     Active Substance: BUDESONIDE\FORMOTEROL FUMARATE DIHYDRATE
     Dosage: 160-4.5MCG/ACT
  3. PREDNISONE [Concomitant]
     Active Substance: PREDNISONE
     Route: 048
     Dates: start: 20230607
  4. FASENRA [Concomitant]
     Active Substance: BENRALIZUMAB
     Route: 058
     Dates: start: 20220106
  5. ALBUTEROL SULFATE [Concomitant]
     Active Substance: ALBUTEROL SULFATE
  6. BUDESONIDE [Concomitant]
     Active Substance: BUDESONIDE
  7. MUCINEX [Concomitant]
     Active Substance: GUAIFENESIN

REACTIONS (7)
  - Respiratory tract infection [Unknown]
  - Blood immunoglobulin E increased [Unknown]
  - Asthma [Unknown]
  - Pulmonary oedema [Unknown]
  - Pulmonary haemorrhage [Unknown]
  - Pneumonitis [Unknown]
  - Drug ineffective [Unknown]

NARRATIVE: CASE EVENT DATE: 20230129
